FAERS Safety Report 6973936-5 (Version None)
Quarter: 2010Q3

REPORT INFORMATION
  Report Type: 
  Country: None (occurrence: None)
  Receive Date: 20100909
  Receipt Date: 20100903
  Transmission Date: 20110219
  Serious: Yes (Hospitalization, Other)
  Sender: FDA-Public Use
  Company Number: CA-ROXANE LABORATORIES, INC.-2010-RO-01187RO

PATIENT
  Age: 11 Year
  Sex: Female
  Weight: 35 kg

DRUGS (9)
  1. ONDANSETRON [Suspect]
     Indication: PROPHYLAXIS OF NAUSEA AND VOMITING
  2. DEXAMETHASONE [Suspect]
     Indication: PROPHYLAXIS OF NAUSEA AND VOMITING
  3. LIDOCAINE [Suspect]
  4. SEVOFLURANE [Suspect]
     Indication: GENERAL ANAESTHESIA
     Route: 055
  5. NITROUS OXIDE [Suspect]
     Indication: GENERAL ANAESTHESIA
     Route: 055
  6. REMIFENTANIL [Suspect]
     Indication: GENERAL ANAESTHESIA
     Route: 042
  7. ROCURONIUM BROMIDE [Suspect]
     Indication: GENERAL ANAESTHESIA
     Route: 042
  8. DIMENHYDRINATE [Suspect]
     Indication: PROPHYLAXIS OF NAUSEA AND VOMITING
  9. FENTANYL CITRATE [Suspect]
     Indication: ANALGESIC THERAPY

REACTIONS (5)
  - PROCEDURAL NAUSEA [None]
  - PROCEDURAL VOMITING [None]
  - RESPIRATORY ACIDOSIS [None]
  - VENTRICULAR EXTRASYSTOLES [None]
  - VENTRICULAR TACHYCARDIA [None]
